FAERS Safety Report 16420387 (Version 3)
Quarter: 2020Q2

REPORT INFORMATION
  Report Type: Spontaneous
  Country: JP (occurrence: JP)
  Receive Date: 20190612
  Receipt Date: 20200414
  Transmission Date: 20200713
  Serious: Yes (Death)
  Sender: FDA-Public Use
  Company Number: JP-ACTELION-A-CH2019-191640

PATIENT
  Age: 19 Year
  Sex: Male
  Weight: 54 kg

DRUGS (26)
  1. UPTRAVI [Suspect]
     Active Substance: SELEXIPAG
     Indication: PULMONARY HYPERTENSION
     Dosage: 0.2 MG, BID
     Route: 048
     Dates: start: 20190419, end: 20190507
  2. LANSOPRAZOLE. [Concomitant]
     Active Substance: LANSOPRAZOLE
     Dosage: 30 MG, QD
     Dates: end: 20190522
  3. KALIMATE [Concomitant]
     Active Substance: CALCIUM POLYSTYRENE SULFONATE
     Indication: RENAL FAILURE
     Dosage: 3 DF, QD
     Dates: start: 20190516, end: 20190522
  4. PIMOBENDAN [Concomitant]
     Active Substance: PIMOBENDAN
     Dosage: 5 MG, QD
     Dates: start: 20190514, end: 20190517
  5. NORADRENALINE [Concomitant]
     Active Substance: NOREPINEPHRINE
     Indication: SEPSIS
     Dosage: UNK
     Dates: start: 20190418, end: 20190424
  6. AZOSEMIDE [Concomitant]
     Active Substance: AZOSEMIDE
     Dosage: 30 MG, QD
     Dates: end: 20190522
  7. CARVEDILOL. [Concomitant]
     Active Substance: CARVEDILOL
     Dosage: 5 MG, QD
     Dates: end: 20190522
  8. ENALAPRIL [Concomitant]
     Active Substance: ENALAPRIL
     Dosage: 7.5 MG, QD
     Dates: start: 20190507, end: 20190515
  9. UPTRAVI [Suspect]
     Active Substance: SELEXIPAG
     Dosage: 0.4 MG, BID
     Route: 048
     Dates: start: 20190508, end: 20190522
  10. MILRINONE [Concomitant]
     Active Substance: MILRINONE
     Indication: CARDIAC FAILURE
     Dosage: 15.8 MG, QD
     Dates: start: 20190517, end: 20190522
  11. TANADOPA [Concomitant]
     Active Substance: DOCARPAMINE
     Indication: CARDIAC FAILURE
     Dosage: 3 DF, QD
     Dates: start: 20190504, end: 20190516
  12. PIMOBENDAN [Concomitant]
     Active Substance: PIMOBENDAN
     Indication: CARDIAC FAILURE
     Dosage: 2.5 MG, QD
     Dates: start: 20190510, end: 20190513
  13. CARBOCISTEINE [Concomitant]
     Active Substance: CARBOCYSTEINE
     Indication: COUGH
     Dosage: 1500 MG, QD
     Dates: start: 20190421
  14. CEFTRIAXONE. [Concomitant]
     Active Substance: CEFTRIAXONE
     Indication: SEPSIS
     Dosage: 2 G, QD
     Dates: start: 20190417, end: 20190508
  15. PREDONINE [Concomitant]
     Active Substance: PREDNISOLONE
     Indication: CARDIAC FAILURE
     Dosage: UNK
     Dates: start: 20190417, end: 20190522
  16. SPIRONOLACTONE. [Concomitant]
     Active Substance: SPIRONOLACTONE
     Dosage: 25 MG, QD
     Dates: end: 20190522
  17. DOBUTAMINE [Concomitant]
     Active Substance: DOBUTAMINE HYDROCHLORIDE
     Indication: CARDIAC FAILURE
     Dosage: UNK
     Dates: start: 20190417, end: 20190522
  18. SAMSCA [Concomitant]
     Active Substance: TOLVAPTAN
     Indication: CARDIAC FAILURE
     Dosage: 15 MG, QD
     Dates: start: 20190417, end: 20190522
  19. MORPHINE [Concomitant]
     Active Substance: MORPHINE
     Indication: CARDIAC FAILURE
     Dosage: UNK
     Dates: start: 20190520, end: 20190522
  20. MEDICON [Concomitant]
     Active Substance: DEXTROMETHORPHAN HYDROBROMIDE
     Indication: COUGH
     Dosage: 45 MG, QD
     Dates: start: 20190421
  21. ENALAPRIL [Concomitant]
     Active Substance: ENALAPRIL
     Indication: CARDIAC FAILURE
     Dosage: 5 MG, QD
     Dates: end: 20190506
  22. DOPAMINE [Concomitant]
     Active Substance: DOPAMINE HYDROCHLORIDE
     Indication: CARDIAC FAILURE
     Dosage: 300 MG, QD
     Dates: start: 20190516, end: 20190522
  23. HALFDIGOXIN [Concomitant]
     Active Substance: DIGOXIN
     Indication: CARDIAC FAILURE
     Dosage: 0.125 MG, QD
     Dates: start: 20190417, end: 20190425
  24. HANP [Concomitant]
     Active Substance: CARPERITIDE
     Indication: CARDIAC FAILURE
     Dosage: UNK
     Dates: start: 20190518, end: 20190520
  25. ENALAPRIL [Concomitant]
     Active Substance: ENALAPRIL
     Dosage: 5 MG, QD
     Dates: start: 20190516, end: 20190520
  26. ALBUMINAR [Concomitant]
     Active Substance: ALBUMIN HUMAN
     Indication: CARDIAC FAILURE
     Dosage: UNK
     Dates: start: 20190417, end: 20190519

REACTIONS (1)
  - Pulmonary hypertension [Fatal]

NARRATIVE: CASE EVENT DATE: 20190523
